FAERS Safety Report 8142317-3 (Version None)
Quarter: 2012Q1

REPORT INFORMATION
  Report Type: 
  Country: None (occurrence: None)
  Receive Date: 20120216
  Receipt Date: 20120209
  Transmission Date: 20120608
  Serious: Yes (Hospitalization, Other)
  Sender: FDA-Public Use
  Company Number: PHHY2012CN001015

PATIENT
  Age: 55 Year
  Sex: Female

DRUGS (9)
  1. CYCLOSPORINE [Interacting]
     Dosage: 225 MG, BID
     Dates: start: 20080403, end: 20080404
  2. CYCLOSPORINE [Interacting]
     Dosage: 175 MG, BID
     Route: 048
     Dates: start: 20080407, end: 20080430
  3. FLUVASTATIN [Concomitant]
     Dosage: 40 MG, QD
     Route: 048
     Dates: start: 20080306, end: 20080403
  4. CYCLOSPORINE [Interacting]
     Dosage: 100 MG, PER DAY
     Dates: start: 20080430, end: 20080507
  5. SIMVASTATIN [Suspect]
     Dosage: 20 MG, QD
     Route: 048
     Dates: start: 20080404, end: 20080508
  6. CYCLOSPORINE [Interacting]
     Indication: RENAL TRANSPLANT
     Dosage: 250 MG, BID
     Dates: start: 20080323, end: 20080403
  7. CYCLOSPORINE [Interacting]
     Dosage: 445 MG, (225 MG MORNING AND 200 MG EVENING)
     Dates: start: 20080404, end: 20080407
  8. MYCOPHENOLATE MOFETIL [Concomitant]
     Dosage: 1.5 G, BID
     Route: 048
  9. PREDNISONE TAB [Concomitant]
     Dosage: 20 MG, QD
     Route: 048

REACTIONS (19)
  - LUNG INFECTION [None]
  - MUSCLE SPASMS [None]
  - MALAISE [None]
  - IMMUNOSUPPRESSANT DRUG LEVEL INCREASED [None]
  - ASPARTATE AMINOTRANSFERASE INCREASED [None]
  - COUGH [None]
  - ASTHENIA [None]
  - MUSCULAR WEAKNESS [None]
  - LIMB DISCOMFORT [None]
  - ALANINE AMINOTRANSFERASE INCREASED [None]
  - PYREXIA [None]
  - DRUG INTERACTION [None]
  - GAMMA-GLUTAMYLTRANSFERASE INCREASED [None]
  - MUSCULOSKELETAL STIFFNESS [None]
  - HYPOREFLEXIA [None]
  - MYOPATHY [None]
  - DYSSTASIA [None]
  - GAIT DISTURBANCE [None]
  - PAIN IN EXTREMITY [None]
